FAERS Safety Report 25479348 (Version 1)
Quarter: 2025Q2

REPORT INFORMATION
  Report Type: Spontaneous
  Country: US (occurrence: US)
  Receive Date: 20250625
  Receipt Date: 20250625
  Transmission Date: 20250717
  Serious: Yes (Other)
  Sender: TEVA
  Company Number: US-TEVA-VS-3342654

PATIENT
  Age: 76 Year
  Sex: Female
  Weight: 54.431 kg

DRUGS (3)
  1. METOCLOPRAMIDE [Suspect]
     Active Substance: METOCLOPRAMIDE
     Indication: Prophylaxis of nausea and vomiting
     Route: 048
  2. Bowel prep [Concomitant]
     Indication: Product used for unknown indication
     Route: 065
  3. STOOL SOFTENER (DOCUSATE) [Concomitant]
     Active Substance: DOCUSATE
     Indication: Product used for unknown indication
     Route: 065

REACTIONS (10)
  - Transient ischaemic attack [Unknown]
  - Fatigue [Unknown]
  - Presyncope [Unknown]
  - Oxygen saturation decreased [Unknown]
  - Weight decreased [Unknown]
  - Nausea [Recovered/Resolved]
  - Confusional state [Unknown]
  - Feeling abnormal [Unknown]
  - Cyanosis [Unknown]
  - Anal incontinence [Unknown]
